FAERS Safety Report 10005925 (Version 1)
Quarter: 2014Q1

REPORT INFORMATION
  Report Type: Other
  Country: DE (occurrence: DE)
  Receive Date: 20140313
  Receipt Date: 20140313
  Transmission Date: 20141002
  Serious: Yes (Life-Threatening)
  Sender: FDA-Public Use
  Company Number: DE-SUN PHARMACEUTICAL INDUSTRIES LTD-2014SUN00543

PATIENT
  Age: 77 Year
  Sex: Female
  Weight: 70 kg

DRUGS (4)
  1. CARBOPLATIN SUN 10 MG/ML KONZENTRAT ZUR HERSTELLUNG EINER INFUSIONSL?G [Suspect]
     Indication: OVARIAN CANCER
     Dosage: 300 MG, UNK
     Route: 042
     Dates: start: 20140225
  2. GEMCITABIN [Concomitant]
     Dosage: 1720 MG, UNK
     Route: 042
  3. DEXAMETHASON [Concomitant]
     Route: 042
  4. FOSAPREPITANT [Concomitant]
     Indication: PROPHYLAXIS OF NAUSEA AND VOMITING
     Dosage: 150 MG, UNK

REACTIONS (1)
  - Anaphylactic shock [Recovered/Resolved]
